FAERS Safety Report 17435780 (Version 1)
Quarter: 2020Q1

REPORT INFORMATION
  Report Type: Spontaneous
  Country: US (occurrence: US)
  Receive Date: 20200219
  Receipt Date: 20200219
  Transmission Date: 20200409
  Serious: Yes (Life-Threatening, Other)
  Sender: FDA-Public Use
  Company Number: US-TARO-2020TAR00197

PATIENT

DRUGS (5)
  1. LITHIUM. [Concomitant]
     Active Substance: LITHIUM
     Indication: PRODUCT USED FOR UNKNOWN INDICATION
     Dosage: 300 MG, QD (300MG X 1 IN MORNING)
     Route: 065
     Dates: start: 2018
  2. VALOXETINE [Concomitant]
     Indication: BIPOLAR DISORDER
     Dosage: 20 MG, QD (ONCE IN MORNING)
     Route: 065
     Dates: start: 2018
  3. LAMOTRIGINE TABLETS 100 MG [Suspect]
     Active Substance: LAMOTRIGINE
     Indication: BIPOLAR DISORDER
     Dosage: 100 MG, QD (ONCE IN THE MORNING)
     Route: 048
     Dates: start: 201912, end: 20200203
  4. TRAZODONE [Concomitant]
     Active Substance: TRAZODONE HYDROCHLORIDE
     Indication: SLEEP DISORDER
     Dosage: 50 MG, QD (ONCE AT NIGHT) [STARTED 2-3 YEARS AGO]
     Route: 065
  5. LITHIUM. [Concomitant]
     Active Substance: LITHIUM
     Dosage: 600 MG, QD (300MG X 2 AT NIGHT)
     Route: 065
     Dates: start: 2018

REACTIONS (9)
  - Spinal pain [Not Recovered/Not Resolved]
  - Rash [Not Recovered/Not Resolved]
  - Near death experience [Not Recovered/Not Resolved]
  - Swelling [Not Recovered/Not Resolved]
  - Back pain [Not Recovered/Not Resolved]
  - Rash pruritic [Not Recovered/Not Resolved]
  - Vaginal haemorrhage [Not Recovered/Not Resolved]
  - Angina pectoris [Not Recovered/Not Resolved]
  - Mood altered [Not Recovered/Not Resolved]

NARRATIVE: CASE EVENT DATE: 201912
